FAERS Safety Report 5332700-3 (Version None)
Quarter: 2007Q2

REPORT INFORMATION
  Report Type: 
  Country: None (occurrence: None)
  Receive Date: 20070521
  Receipt Date: 20070507
  Transmission Date: 20071010
  Serious: Yes (Other)
  Sender: FDA-Public Use
  Company Number: GXKR2007DK04235

PATIENT
  Age: 42 Year
  Sex: Female
  Weight: 65 kg

DRUGS (4)
  1. HEXALID (NGX) (DIAZEPAM) [Suspect]
     Indication: PAIN
     Dosage: 15 MG, ORAL
     Route: 048
     Dates: start: 19990101
  2. CONTALGIN (MORPHINE SULFATE) [Suspect]
     Indication: PAIN
     Dosage: 160 MG, ORAL
     Route: 048
     Dates: start: 19990101
  3. IBUMETIN (IBUPROFEN) [Suspect]
     Dosage: 2400 MG, ORAL
     Route: 048
     Dates: start: 19990101
  4. KETOGAN (DIMETHYL-3,3-DIPHENYL-1-METHYLALLYL HCL, KETOBEMIDONE HYDROCH [Suspect]
     Dosage: 7.5 MG, ORAL
     Route: 048
     Dates: start: 19990101

REACTIONS (2)
  - PERIODONTITIS [None]
  - TOOTH LOSS [None]
